FAERS Safety Report 6091377-2 (Version None)
Quarter: 2009Q1

REPORT INFORMATION
  Report Type: 
  Country: None (occurrence: None)
  Receive Date: 20090225
  Receipt Date: 20081103
  Transmission Date: 20090719
  Serious: No
  Sender: FDA-Public Use
  Company Number: A0754616A

PATIENT
  Age: 65 Year
  Sex: Female

DRUGS (3)
  1. VERAMYST [Suspect]
     Dosage: 2SPR PER DAY
     Route: 045
     Dates: start: 20081001
  2. SINGULAIR [Concomitant]
  3. LIPITOR [Concomitant]

REACTIONS (5)
  - DRUG INEFFECTIVE [None]
  - NASAL CONGESTION [None]
  - NOCTURNAL DYSPNOEA [None]
  - RHINORRHOEA [None]
  - SNEEZING [None]
